FAERS Safety Report 7543137-0 (Version None)
Quarter: 2011Q2

REPORT INFORMATION
  Report Type: 
  Country: None (occurrence: None)
  Receive Date: 20110613
  Receipt Date: 20110613
  Transmission Date: 20111010
  Serious: Yes (Hospitalization)
  Sender: FDA-Public Use
  Company Number: PHHO2007FR18464

PATIENT
  Sex: Male
  Weight: 66 kg

DRUGS (4)
  1. MYCOPHENOLIC ACID [Suspect]
     Indication: CHRONIC GRAFT VERSUS HOST DISEASE
     Dosage: UNK
     Route: 048
     Dates: start: 20070905, end: 20071012
  2. PREDNISONE [Concomitant]
     Indication: CHRONIC GRAFT VERSUS HOST DISEASE
     Route: 042
     Dates: start: 20070904
  3. CYCLOSPORINE [Concomitant]
     Indication: CHRONIC GRAFT VERSUS HOST DISEASE
     Route: 042
     Dates: start: 20070904
  4. ORACILLIN [Concomitant]

REACTIONS (2)
  - ABDOMINAL PAIN [None]
  - MESENTERIC VEIN THROMBOSIS [None]
